FAERS Safety Report 7690012-7 (Version None)
Quarter: 2011Q3

REPORT INFORMATION
  Report Type: 
  Country: None (occurrence: None)
  Receive Date: 20110818
  Receipt Date: 20110811
  Transmission Date: 20111222
  Serious: Yes (Death)
  Sender: FDA-Public Use
  Company Number: IE-AMGEN-IRLSP2011040962

PATIENT
  Sex: Male

DRUGS (6)
  1. ZOCOR [Concomitant]
  2. ADENURIC [Concomitant]
  3. DIAMICRON [Concomitant]
  4. LYRICA [Concomitant]
  5. LERCANIDIPINE [Concomitant]
  6. ARANESP [Suspect]
     Indication: PRODUCT USED FOR UNKNOWN INDICATION
     Dosage: 30 A?G, QWK
     Route: 058
     Dates: start: 20110802

REACTIONS (1)
  - DEATH [None]
